FAERS Safety Report 9807962 (Version 1)
Quarter: 2014Q1

REPORT INFORMATION
  Report Type: Spontaneous
  Country: US (occurrence: US)
  Receive Date: 20140110
  Receipt Date: 20140110
  Transmission Date: 20141002
  Serious: Yes (Other)
  Sender: FDA-Public Use
  Company Number: US-PFIZER INC-2014005718

PATIENT
  Age: 62 Year
  Sex: Female
  Weight: 81.63 kg

DRUGS (3)
  1. GLUCOTROL XL [Suspect]
     Indication: DIABETES MELLITUS
     Dosage: 10 MG, 3X/DAY
  2. DIOVAN HCT [Concomitant]
     Indication: BLOOD PRESSURE INCREASED
     Dosage: UNK, 1X/DAY(VALSARTAN 160MG/HYDROCHLOROTHIAZIDE 12.5 MG)
  3. LANTUS [Concomitant]
     Indication: DIABETES MELLITUS
     Dosage: 100 IU, 1X/DAY

REACTIONS (1)
  - Neoplasm malignant [Unknown]
